FAERS Safety Report 5011256-9 (Version None)
Quarter: 2006Q2

REPORT INFORMATION
  Report Type: 
  Country: None (occurrence: None)
  Receive Date: 20060523
  Receipt Date: 20060510
  Transmission Date: 20061013
  Serious: Yes (Hospitalization)
  Sender: FDA-Public Use
  Company Number: 430022M06USA

PATIENT
  Age: 41 Year
  Sex: Female
  Weight: 76.2043 kg

DRUGS (11)
  1. NOVANTRONE [Suspect]
     Indication: MULTIPLE SCLEROSIS
     Dosage: 12 MG/M2, INTRAVENOUS
     Route: 042
     Dates: start: 20060428
  2. ORAL CONTRACEPTIVES (ORAL CONTRACEPTIVE NOS) [Concomitant]
  3. BACLOFEN [Concomitant]
  4. SINGULAIR (MONTELUKAST /01362601/) [Concomitant]
  5. EFFEXOR [Concomitant]
  6. ZANAFLEX [Concomitant]
  7. PROTONIX [Concomitant]
  8. ALBUTEROL (SALBUTAMOL / 00139501/) [Concomitant]
  9. VITAMINS (VITAMINS) [Concomitant]
  10. CALCIUM (CALCIUM-SANDOZ /00009901/) [Concomitant]
  11. VITAMIN D [Concomitant]

REACTIONS (1)
  - PULMONARY EMBOLISM [None]
